FAERS Safety Report 10068840 (Version 2)
Quarter: 2014Q2

REPORT INFORMATION
  Report Type: Spontaneous
  Country: US (occurrence: US)
  Receive Date: 20140409
  Receipt Date: 20140409
  Transmission Date: 20141212
  Serious: No
  Sender: FDA-Public Use
  Company Number: US-MYLANLABS-2014S1001904

PATIENT
  Age: 35 Month
  Sex: Male
  Weight: 13.15 kg

DRUGS (3)
  1. MONTELUKAST SODIUM ORAL GRANULES [Suspect]
     Indication: MULTIPLE ALLERGIES
     Route: 048
     Dates: start: 20131129, end: 20140109
  2. MONTELUKAST SODIUM ORAL GRANULES [Suspect]
     Indication: RHINITIS
     Route: 048
     Dates: start: 20131129, end: 20140109
  3. MONTELUKAST SODIUM ORAL GRANULES [Suspect]
     Indication: SINUSITIS
     Route: 048
     Dates: start: 20131129, end: 20140109

REACTIONS (1)
  - Tremor [Recovered/Resolved]
